FAERS Safety Report 8079302-6 (Version None)
Quarter: 2012Q1

REPORT INFORMATION
  Report Type: 
  Country: None (occurrence: None)
  Receive Date: 20120128
  Receipt Date: 20110816
  Transmission Date: 20120608
  Serious: No
  Sender: FDA-Public Use
  Company Number: US-ABBOTT-11P-163-0848336-00

PATIENT
  Age: 63 Year
  Sex: Female

DRUGS (12)
  1. MORPHINE [Concomitant]
     Indication: PAIN
     Route: 048
  2. HYDROCHLOROTHIAZIDE [Concomitant]
     Indication: HYPERTENSION
     Route: 048
  3. TOPROL-XL [Concomitant]
     Indication: HYPERTENSION
     Route: 048
  4. LEFLUNOMIDE [Concomitant]
     Indication: ARTHRITIS
     Route: 048
  5. LISINOPRIL [Concomitant]
     Indication: HYPERTENSION
     Route: 048
  6. UNKNOWN CREAM [Concomitant]
     Indication: FUNGAL INFECTION
  7. PRILOSEC [Concomitant]
     Indication: DYSPEPSIA
     Route: 048
  8. XANAX [Concomitant]
     Indication: ANXIETY
     Route: 048
  9. HUMIRA [Suspect]
     Indication: PSORIASIS
     Dates: start: 20080101
  10. ADVAIR DISKUS 100/50 [Concomitant]
     Indication: CHRONIC OBSTRUCTIVE PULMONARY DISEASE
  11. ZOCOR [Concomitant]
     Indication: BLOOD CHOLESTEROL INCREASED
     Dosage: AT BEDTIME
     Route: 048
  12. METFFORMIN HYDROCHLORIDE [Concomitant]
     Indication: DIABETES MELLITUS
     Route: 048

REACTIONS (3)
  - PSORIASIS [None]
  - BRONCHITIS [None]
  - HEPATIC CYST [None]
